FAERS Safety Report 9015707 (Version 2)
Quarter: 2013Q1

REPORT INFORMATION
  Report Type: Report from Study
  Country: GB (occurrence: GB)
  Receive Date: 20130116
  Receipt Date: 20130227
  Transmission Date: 20140127
  Serious: Yes (Hospitalization, Other)
  Sender: FDA-Public Use
  Company Number: GB-ROCHE-1178566

PATIENT
  Sex: Male
  Weight: 90 kg

DRUGS (6)
  1. RITUXIMAB [Suspect]
     Indication: RHEUMATOID ARTHRITIS
     Dosage: 20/AUG/2012, LAST DOSE PRIOR TO SAE
     Route: 065
     Dates: start: 20071219
  2. PREDNISOLONE [Concomitant]
     Route: 048
  3. BISOPROLOL [Concomitant]
     Route: 048
  4. LANSOPRAZOLE [Concomitant]
     Route: 048
  5. CALCICHEW D3 [Concomitant]
     Dosage: 2 TABLETS
     Route: 048
  6. ALENDRONIC ACID [Concomitant]
     Route: 048

REACTIONS (2)
  - Hemianopia [Unknown]
  - Duodenal ulcer [Unknown]
